FAERS Safety Report 4655485-2 (Version None)
Quarter: 2005Q2

REPORT INFORMATION
  Report Type: 
  Country: None (occurrence: None)
  Receive Date: 20050506
  Receipt Date: 20050428
  Transmission Date: 20051028
  Serious: Yes (Other)
  Sender: FDA-Public Use
  Company Number: US-MERCK-0505USA00163

PATIENT
  Sex: Female

DRUGS (4)
  1. ATENOLOL [Suspect]
     Indication: CARDIAC DISORDER
     Route: 048
     Dates: start: 20000101, end: 20030101
  2. ATENOLOL [Suspect]
     Route: 048
     Dates: start: 20030201, end: 20030504
  3. ATENOLOL [Suspect]
     Route: 048
     Dates: start: 20030505
  4. VIOXX [Suspect]
     Indication: ARTHRALGIA
     Route: 048
     Dates: end: 20030505

REACTIONS (10)
  - BLOOD PRESSURE INCREASED [None]
  - CHEST PAIN [None]
  - DRUG DISPENSING ERROR [None]
  - DYSPNOEA [None]
  - HEART RATE DECREASED [None]
  - INCORRECT DOSE ADMINISTERED [None]
  - INSOMNIA [None]
  - MYOCARDIAL INFARCTION [None]
  - NECK PAIN [None]
  - POLYTRAUMATISM [None]
